FAERS Safety Report 6368523-6 (Version None)
Quarter: 2009Q3

REPORT INFORMATION
  Report Type: 
  Country: None (occurrence: None)
  Receive Date: 20090922
  Receipt Date: 20090915
  Transmission Date: 20100115
  Serious: Yes (Hospitalization)
  Sender: FDA-Public Use
  Company Number: B0594337A

PATIENT
  Sex: Female

DRUGS (5)
  1. LANOXIN [Suspect]
     Indication: ATRIAL FIBRILLATION
     Route: 048
     Dates: start: 20090708, end: 20090723
  2. SINTROM [Suspect]
     Indication: ATRIAL FIBRILLATION
     Route: 048
     Dates: start: 20000101, end: 20090723
  3. LASIX [Concomitant]
     Dosage: 6U PER DAY
     Route: 048
  4. LUVION [Concomitant]
     Dosage: 1U PER DAY
     Route: 048
  5. KARVEA [Concomitant]
     Dosage: 1U PER DAY
     Route: 048

REACTIONS (3)
  - BRADYARRHYTHMIA [None]
  - INTERNATIONAL NORMALISED RATIO INCREASED [None]
  - THERAPEUTIC AGENT TOXICITY [None]
